FAERS Safety Report 7299546-0 (Version None)
Quarter: 2010Q4

REPORT INFORMATION
  Report Type: 
  Country: None (occurrence: None)
  Receive Date: 20101223
  Receipt Date: 20101207
  Transmission Date: 20110411
  Serious: Yes (Hospitalization)
  Sender: FDA-Public Use
  Company Number: 313914

PATIENT
  Age: 49 Year
  Sex: Female
  Weight: 76.2 kg

DRUGS (10)
  1. LEVEMIR [Suspect]
     Indication: TYPE 2 DIABETES MELLITUS
     Dosage: 15 IU, BID, SUBCUTANEOUS
     Route: 058
  2. HUMALOG [Concomitant]
  3. LYRICA [Concomitant]
  4. ASPIRIN [Suspect]
  5. ZETIA [Concomitant]
  6. LISINOPRIL [Concomitant]
  7. SIMVASTATIN [Concomitant]
  8. LORATADINE [Concomitant]
  9. PREDNISOLONE [Concomitant]
  10. KETOROLAC (KETOROLAC) [Concomitant]

REACTIONS (3)
  - HYPOGLYCAEMIA [None]
  - NAUSEA [None]
  - VOMITING [None]
